FAERS Safety Report 16673675 (Version 2)
Quarter: 2019Q3

REPORT INFORMATION
  Report Type: Spontaneous
  Country: RU (occurrence: RU)
  Receive Date: 20190806
  Receipt Date: 20190909
  Transmission Date: 20191004
  Serious: Yes (Other)
  Sender: FDA-Public Use
  Company Number: RU-TEVA-2019-RU-1087360

PATIENT
  Age: 16 Year
  Sex: Male

DRUGS (9)
  1. VINCRISTINE [Suspect]
     Active Substance: VINCRISTINE
     Route: 065
  2. CYTARABINE. [Concomitant]
     Active Substance: CYTARABINE
     Route: 037
  3. COTRIMOXAZOLE [Concomitant]
     Active Substance: SULFAMETHOXAZOLE\TRIMETHOPRIM
  4. METHOTREXATE. [Suspect]
     Active Substance: METHOTREXATE
     Indication: DRUG THERAPY
     Route: 037
     Dates: start: 20160318
  5. ONDANSETRON [Concomitant]
     Active Substance: ONDANSETRON
  6. METHOTREXATE. [Suspect]
     Active Substance: METHOTREXATE
     Route: 042
  7. ENALAPRIL [Concomitant]
     Active Substance: ENALAPRIL
  8. DEXAMETHASONE. [Concomitant]
     Active Substance: DEXAMETHASONE
  9. AMOXICILLIN W/CLAVULANIC ACID [Concomitant]
     Active Substance: AMOXICILLIN\CLAVULANIC ACID

REACTIONS (2)
  - Leukoencephalopathy [Unknown]
  - Polyneuropathy [Unknown]
